FAERS Safety Report 21128407 (Version 2)
Quarter: 2022Q3

REPORT INFORMATION
  Report Type: Spontaneous
  Country: US (occurrence: US)
  Receive Date: 20220725
  Receipt Date: 20220826
  Transmission Date: 20221027
  Serious: No
  Sender: FDA-Public Use
  Company Number: US-PFIZER INC-202200939148

PATIENT
  Age: 46 Year
  Sex: Female
  Weight: 83.91 kg

DRUGS (2)
  1. SOMAVERT [Suspect]
     Active Substance: PEGVISOMANT
     Indication: Acromegaly
     Dosage: 25 MG (PER DAY)
  2. SOMAVERT [Suspect]
     Active Substance: PEGVISOMANT
     Indication: Pituitary tumour benign
     Dosage: 20 MG (UPPER THIGH OR LOWER ABDOMEN)

REACTIONS (3)
  - Malaise [Unknown]
  - Intentional dose omission [Unknown]
  - Expired device used [Unknown]
